FAERS Safety Report 15862623 (Version 1)
Quarter: 2019Q1

REPORT INFORMATION
  Report Type: Spontaneous
  Country: US (occurrence: US)
  Receive Date: 20190124
  Receipt Date: 20190124
  Transmission Date: 20190417
  Serious: Yes (Other)
  Sender: FDA-Public Use
  Company Number: None

PATIENT
  Age: 63 Year
  Sex: Female
  Weight: 104.4 kg

DRUGS (1)
  1. DOPTELET [Suspect]
     Active Substance: AVATROMBOPAG MALEATE
     Indication: THROMBOCYTOPENIA
     Route: 048
     Dates: start: 20181013, end: 20181017

REACTIONS (1)
  - Portal vein thrombosis [None]

NARRATIVE: CASE EVENT DATE: 20181124
